FAERS Safety Report 4728513-3 (Version None)
Quarter: 2005Q3

REPORT INFORMATION
  Report Type: 
  Country: None (occurrence: None)
  Receive Date: 20050729
  Receipt Date: 20050325
  Transmission Date: 20060218
  Serious: No
  Sender: FDA-Public Use
  Company Number: 20050102472

PATIENT
  Sex: Female

DRUGS (2)
  1. ZANTAC [Suspect]
     Indication: DRUG USE FOR UNKNOWN INDICATION
     Route: 065
  2. TYLENOL [Suspect]
     Indication: ARTHRALGIA
     Dosage: 650MG AS REQUIRED
     Route: 048

REACTIONS (1)
  - VOMITING [None]
